FAERS Safety Report 16467072 (Version 1)
Quarter: 2019Q2

REPORT INFORMATION
  Report Type: Spontaneous
  Country: SE (occurrence: SE)
  Receive Date: 20190624
  Receipt Date: 20190624
  Transmission Date: 20190711
  Serious: Yes (Hospitalization)
  Sender: FDA-Public Use
  Company Number: SE-JNJFOC-20190620895

PATIENT
  Age: 17 Year
  Sex: Female

DRUGS (6)
  1. MIRTAZAPINE. [Suspect]
     Active Substance: MIRTAZAPINE
     Indication: PRODUCT USED FOR UNKNOWN INDICATION
     Route: 065
     Dates: start: 20190303, end: 20190303
  2. LERGIGAN                           /00033002/ [Suspect]
     Active Substance: PROMETHAZINE HYDROCHLORIDE
     Indication: PRODUCT USED FOR UNKNOWN INDICATION
     Route: 048
     Dates: start: 20190303, end: 20190303
  3. ATARAX [Suspect]
     Active Substance: HYDROXYZINE HYDROCHLORIDE
     Indication: PRODUCT USED FOR UNKNOWN INDICATION
     Route: 065
     Dates: start: 20190303, end: 20190303
  4. ALVEDON [Suspect]
     Active Substance: ACETAMINOPHEN
     Indication: PRODUCT USED FOR UNKNOWN INDICATION
     Dosage: 5-10 ST; IN TOTAL
     Route: 065
     Dates: start: 20190303, end: 20190303
  5. IPREN TABLETS UNSPECIFIED [Suspect]
     Active Substance: IBUPROFEN
     Indication: PRODUCT USED FOR UNKNOWN INDICATION
     Route: 065
     Dates: start: 20190303
  6. PROPAVAN [Suspect]
     Active Substance: PROPIOMAZINE
     Indication: PRODUCT USED FOR UNKNOWN INDICATION
     Route: 065
     Dates: start: 20190303, end: 20190303

REACTIONS (2)
  - Intentional overdose [Unknown]
  - Intentional self-injury [Unknown]

NARRATIVE: CASE EVENT DATE: 20190303
